FAERS Safety Report 7853201-4 (Version None)
Quarter: 2011Q4

REPORT INFORMATION
  Report Type: 
  Country: None (occurrence: None)
  Receive Date: 20111026
  Receipt Date: 20111019
  Transmission Date: 20120403
  Serious: Yes (Other)
  Sender: FDA-Public Use
  Company Number: US-MERCK-1110USA03294

PATIENT
  Age: 95 Year
  Sex: Female

DRUGS (5)
  1. LOSARTAN POTASSIUM [Concomitant]
     Route: 065
  2. SIMVASTATIN [Concomitant]
     Route: 065
  3. JANUVIA [Suspect]
     Indication: DIABETES MELLITUS
     Route: 048
     Dates: start: 20091001
  4. COUMADIN [Suspect]
     Indication: THROMBOSIS
     Route: 065
  5. SYNTHROID [Concomitant]
     Route: 065

REACTIONS (3)
  - PANCREATIC CARCINOMA [None]
  - THROMBOSIS [None]
  - JAUNDICE [None]
